FAERS Safety Report 20559861 (Version 1)
Quarter: 2022Q1

REPORT INFORMATION
  Report Type: Spontaneous
  Country: DE (occurrence: DE)
  Receive Date: 20220307
  Receipt Date: 20220307
  Transmission Date: 20220423
  Serious: Yes (Life-Threatening)
  Sender: FDA-Public Use
  Company Number: DE-NOVARTISPH-NVSC2022DE052025

PATIENT
  Age: 79 Year
  Sex: Female
  Weight: 85 kg

DRUGS (12)
  1. METHOTREXATE SODIUM [Suspect]
     Active Substance: METHOTREXATE SODIUM
     Indication: Rheumatoid arthritis
     Dosage: 10 MG, QD 9DAILY DOSE: 10 MG MILLGRAM(S) EVERY DAYS)
     Route: 048
     Dates: start: 20220118, end: 20220125
  2. FOLIC ACID [Suspect]
     Active Substance: FOLIC ACID
     Indication: Product used for unknown indication
     Dosage: 5 MG, QW (DAILY DOSE: 5 MG MILLGRAM(S) EVERY WEEKS)
     Route: 048
     Dates: start: 20220119, end: 20220201
  3. ACETAMINOPHEN [Concomitant]
     Active Substance: ACETAMINOPHEN
     Indication: Postoperative analgesia
     Dosage: 2000 MG, QD (DAILY DOSE: 2000 MG MILLGRAM(S) EVERY DAYS 4 SEPARATED DOSES)
     Route: 048
     Dates: start: 20220118, end: 20220201
  4. PANTOPRAZOLE SODIUM [Concomitant]
     Active Substance: PANTOPRAZOLE SODIUM
     Indication: Product used for unknown indication
     Dosage: 40 MG, QD (DAILY DOSE: 40 MG MILLGRAM(S) EVERY DAYS)
     Route: 048
     Dates: start: 20220118, end: 20220201
  5. ENOXAPARIN [Concomitant]
     Active Substance: ENOXAPARIN
     Indication: Product used for unknown indication
     Dosage: 80 MG, QD (DAILY DOSE: 80 MG MILLGRAM(S) EVERY DAYS 2 SEPARATED DOSES)
     Route: 065
  6. AMBICILLIN [Concomitant]
     Indication: Product used for unknown indication
     Dosage: 9 G, QD (DAILY DOSE: 9 G GRAM(S) EVERY DAYS 3 SEPARATED DOSES)
     Route: 042
     Dates: start: 20220117, end: 20220126
  7. METAMIZOL [Concomitant]
     Active Substance: METAMIZOLE SODIUM
     Indication: Postoperative analgesia
     Dosage: 500 MG
     Route: 048
  8. METAMIZOL [Concomitant]
     Active Substance: METAMIZOLE SODIUM
     Dosage: 4000 MG, QD (DAILY DOSE: 4000 MG MILLGRAM(S) EVERY DAYS 4 SEPARATED DOSES)
     Route: 048
     Dates: start: 20220119, end: 20220126
  9. MEROPENEM [Concomitant]
     Active Substance: MEROPENEM
     Indication: Product used for unknown indication
     Dosage: 3 G, QD (DAILY DOSE: 3 G GRAM(S) EVERY DAYS 3 SEPARATED DOSES)
     Route: 042
     Dates: start: 20220127, end: 20220201
  10. IBUPROFEN [Concomitant]
     Active Substance: IBUPROFEN
     Indication: Postoperative analgesia
     Dosage: 2400 MG, QD (DAILY DOSE: 2400 MG MILLGRAM(S) EVERY DAYS 4 SEPARATED DOSES)
     Route: 048
     Dates: end: 20220123
  11. MOXONIDINE [Concomitant]
     Active Substance: MOXONIDINE
     Indication: Product used for unknown indication
     Dosage: 0.2 MG (0.5-0-0)
     Route: 065
  12. BISOPROLOL [Concomitant]
     Active Substance: BISOPROLOL
     Indication: Product used for unknown indication
     Dosage: 2.5 MG, QD (DAILY DOSE: 2.5 MG MILLGRAM(S) EVERY DAYS)
     Route: 065

REACTIONS (8)
  - Oral mucosal blistering [Unknown]
  - Oral mucosal erythema [Unknown]
  - Post procedural contusion [Unknown]
  - Accidental overdose [Unknown]
  - Product prescribing error [Unknown]
  - Inappropriate schedule of product administration [Unknown]
  - Rash pruritic [Unknown]
  - Pancytopenia [Unknown]

NARRATIVE: CASE EVENT DATE: 20220118
